FAERS Safety Report 11632927 (Version 1)
Quarter: 2015Q4

REPORT INFORMATION
  Report Type: Spontaneous
  Country: TN (occurrence: TN)
  Receive Date: 20151015
  Receipt Date: 20151015
  Transmission Date: 20160304
  Serious: Yes (Hospitalization, Other)
  Sender: FDA-Public Use
  Company Number: TN-BAYER-2015-438206

PATIENT
  Age: 48 Year
  Sex: Female

DRUGS (1)
  1. MAGNEVIST [Suspect]
     Active Substance: GADOPENTETATE DIMEGLUMINE
     Indication: NUCLEAR MAGNETIC RESONANCE IMAGING HEART
     Dosage: 20 ML, ONCE

REACTIONS (4)
  - Chills [None]
  - Hypothermia [None]
  - Altered state of consciousness [None]
  - Tremor [None]

NARRATIVE: CASE EVENT DATE: 20151002
